FAERS Safety Report 23118531 (Version 16)
Quarter: 2024Q2

REPORT INFORMATION
  Report Type: Report from Study
  Country: RU (occurrence: RU)
  Receive Date: 20231028
  Receipt Date: 20240419
  Transmission Date: 20240716
  Serious: Yes (Hospitalization, Other)
  Sender: FDA-Public Use
  Company Number: RU-002147023-NVSC2023RU228264

PATIENT
  Age: 0 Year
  Sex: Female
  Weight: 4.61 kg

DRUGS (4)
  1. ZOLGENSMA [Suspect]
     Active Substance: ONASEMNOGENE ABEPARVOVEC-XIOI
     Indication: Spinal muscular atrophy
     Dosage: 23.9 ML, ONCE/SINGLE
     Route: 041
     Dates: start: 20231012, end: 20231012
  2. CHOLECALCIFEROL [Concomitant]
     Active Substance: CHOLECALCIFEROL
     Indication: Product used for unknown indication
     Dosage: 1000 IU (IN THE MORNING)
     Route: 048
     Dates: start: 20231010, end: 20231020
  3. LEVOMYCETIN [Concomitant]
     Indication: Product used for unknown indication
     Dosage: 1 DRP, QID (IN THE CONJUNCTIVAL SAC OF THE RIGHT EYE)
     Route: 031
     Dates: start: 20231011, end: 20231020
  4. PREDNISOLONE [Concomitant]
     Active Substance: PREDNISOLONE
     Indication: Product used for unknown indication
     Dosage: 5 MG, QD
     Route: 048
     Dates: start: 20231011, end: 20231020

REACTIONS (5)
  - Dyspnoea [Recovered/Resolved]
  - Dyspnoea [Recovered/Resolved]
  - Regurgitation [Recovering/Resolving]
  - Body temperature increased [Recovering/Resolving]
  - Full blood count abnormal [Not Recovered/Not Resolved]

NARRATIVE: CASE EVENT DATE: 20231015
